FAERS Safety Report 16423340 (Version 1)
Quarter: 2019Q2

REPORT INFORMATION
  Report Type: Other
  Country: FR (occurrence: FR)
  Receive Date: 20190612
  Receipt Date: 20190612
  Transmission Date: 20190711
  Serious: Yes (Death)
  Sender: FDA-Public Use
  Company Number: FR-CELLTRION INC.-2019FR021903

PATIENT

DRUGS (1)
  1. REMSIMA [Suspect]
     Active Substance: INFLIXIMAB
     Dosage: 300 MG EVERY 6 WEEKS
     Route: 064
     Dates: start: 20180816, end: 20181218

REACTIONS (3)
  - Amniotic cavity infection [Fatal]
  - Foetal exposure during pregnancy [Unknown]
  - Premature baby [Fatal]

NARRATIVE: CASE EVENT DATE: 20190120
